FAERS Safety Report 12527645 (Version 5)
Quarter: 2017Q1

REPORT INFORMATION
  Report Type: Spontaneous
  Country: US (occurrence: US)
  Receive Date: 20160705
  Receipt Date: 20170308
  Transmission Date: 20170428
  Serious: Yes (Hospitalization, Other)
  Sender: FDA-Public Use
  Company Number: US-PFIZER INC-2016320547

PATIENT
  Age: 68 Year
  Sex: Female

DRUGS (37)
  1. CRANBERRY/ VITAMIN C/VITAMIN E [Concomitant]
     Dosage: 2 DF, DAILY (CRANBERRY 4200 MG / ASCORBIC ACID 20 MG / VITAMIN E 3 UNIT)
     Route: 048
  2. KLOR-CON [Concomitant]
     Active Substance: POTASSIUM CHLORIDE
     Dosage: 20 MEQ, DAILY
     Route: 048
  3. GARAMYCIN [Concomitant]
     Active Substance: GENTAMICIN SULFATE
     Dosage: 1 GTT, 3X/DAY
     Route: 047
  4. XELJANZ XR [Suspect]
     Active Substance: TOFACITINIB CITRATE
     Indication: RHEUMATOID ARTHRITIS
     Dosage: 11 MG, 1X/DAY
     Dates: start: 2015
  5. METHOTREXATE. [Concomitant]
     Active Substance: METHOTREXATE
     Dosage: 20 MG, WEEKLY (2.5 MG TABLET: TAKE 8 TABLETS/ONCE A WEEK ON WEDNESDAY)
     Route: 048
     Dates: start: 2013
  6. PARAFON FORTE [Concomitant]
     Active Substance: CHLORZOXAZONE
     Indication: MUSCLE SPASMS
     Dosage: 500 MG TABLET AT 1 TABLET, AS NEEDED (NIGHTLY )
     Route: 048
  7. LEVOTHYROXINE. [Concomitant]
     Active Substance: LEVOTHYROXINE
     Dosage: 50 MCG TABLET AT 1 TABLET , DAILY
     Route: 048
  8. LIPITOR [Concomitant]
     Active Substance: ATORVASTATIN CALCIUM
     Dosage: 40 MG TABLET AT 1 TABLET, 1X/DAY (EVERY NIGHT AT BEDTIME)
     Route: 048
  9. COLLAGEN [Concomitant]
     Active Substance: COLLAGEN
     Dosage: 500 MG, AS NEEDED (OCCASIONAL)/ THREE TIMES DAILY
     Route: 048
  10. COENZYME Q10 [Concomitant]
     Active Substance: UBIDECARENONE
     Dosage: 100 MG, 2X/DAY
     Route: 048
  11. COLACE [Concomitant]
     Active Substance: DOCUSATE SODIUM
     Dosage: 100 MG, DAILY
     Route: 048
  12. NORCO [Concomitant]
     Active Substance: ACETAMINOPHEN\HYDROCODONE BITARTRATE
     Indication: PAIN
     Dosage: 5-325 MG PER TABLET AT 0.5-1 TABLETS EVERY 4 HOURS AS NEEDED
     Route: 048
  13. ZESTRIL [Concomitant]
     Active Substance: LISINOPRIL
     Dosage: 5 MG TABLET AT 1 TABLET, DAILY
     Route: 048
  14. TOPROL XL [Concomitant]
     Active Substance: METOPROLOL SUCCINATE
     Dosage: 25 MG TABLET AT 1 TABLET, 1X/DAY
     Route: 048
  15. VITAMIN B12 [Concomitant]
     Active Substance: CYANOCOBALAMIN
     Dosage: 2500 UG, DAILY
     Route: 060
  16. FLOVENT HFA [Concomitant]
     Active Substance: FLUTICASONE PROPIONATE
     Dosage: 44 MCG/ACT INHALER AT 1 PUFF INTO THE LUNGS 2 TIMES DAILY
     Route: 055
  17. QVAR [Concomitant]
     Active Substance: BECLOMETHASONE DIPROPIONATE
     Dosage: 40 MCG/ACT INHALER AT 2 PUFFS INTO THE LUNGS 2 TIMES DAILY
     Route: 055
  18. TESSALON [Concomitant]
     Active Substance: BENZONATATE
     Indication: COUGH
     Dosage: 100 MG, AS NEEDED (3 TIMES DAILY)
     Route: 048
  19. XANAX [Concomitant]
     Active Substance: ALPRAZOLAM
     Indication: SLEEP DISORDER
     Dosage: 0.5 MG, AS NEEDED (EVERY NIGHT AT BEDTIME)
     Route: 048
  20. TUMS [Concomitant]
     Active Substance: CALCIUM CARBONATE
     Dosage: 500 MG, 2X/DAY
     Route: 048
  21. PROVENTIL HFA [Concomitant]
     Active Substance: ALBUTEROL SULFATE
     Indication: DYSPNOEA
  22. COUMADIN [Concomitant]
     Active Substance: WARFARIN SODIUM
     Indication: COAGULOPATHY
     Dosage: 5 MG TABLET AT 1 TO 1 AND A HALF TABS DAILY
  23. FOSAMAX [Concomitant]
     Active Substance: ALENDRONATE SODIUM
     Dosage: 70 MG TABLET AT 1 TABLET, WEEKLY (EVERY 7 DAYS)
     Route: 048
  24. LUTEIN [Concomitant]
     Active Substance: LUTEIN
     Dosage: 40 MG, DAILY
     Route: 048
  25. CYMBALTA [Concomitant]
     Active Substance: DULOXETINE HYDROCHLORIDE
     Dosage: 30 MG CAPSULE AT 1 CAPSULE, DAILY
     Route: 048
  26. VITAMIN D [Concomitant]
     Active Substance: CHOLECALCIFEROL
     Dosage: 2000 IU, DAILY
     Route: 048
  27. TUSSI-ORGANIDIN NR [Concomitant]
     Indication: COUGH
     Dosage: 10 ML, AS NEEDED (EVERY 6 HOURS)/(CODEINE PHOSPHATE- 10MG/5ML)/ (GUAIFENESIN-100MG/5ML)
     Route: 048
  28. VENTOLIN HFA [Concomitant]
     Active Substance: ALBUTEROL SULFATE
     Indication: WHEEZING
     Dosage: 2 DF, AS NEEDED (INHALE 2 PUFFS INTO THE LUNGS EVERY 4 HOURS)
     Route: 055
  29. VENTOLIN HFA [Concomitant]
     Active Substance: ALBUTEROL SULFATE
     Indication: DYSPNOEA
  30. PRINIVIL [Concomitant]
     Active Substance: LISINOPRIL
     Dosage: 5 MG TABLET AT 1 TABLET , DAILY
     Route: 048
  31. ASPIRIN. [Concomitant]
     Active Substance: ASPIRIN
     Dosage: 81 MG, DAILY
     Route: 048
  32. GLUCOSAMINE HCL/MSM [Concomitant]
     Dosage: 1500 MG, DAILY
     Route: 048
  33. PROTONIX [Concomitant]
     Active Substance: PANTOPRAZOLE SODIUM
     Dosage: 40 MG, 2X/DAY
     Route: 048
  34. GINGER. [Concomitant]
     Active Substance: GINGER
     Dosage: 2 DF, DAILY
     Route: 048
  35. FOLVITE [Concomitant]
     Active Substance: FOLIC ACID
     Dosage: 0.8 MG, DAILY
     Route: 048
  36. VITAMIN C [Concomitant]
     Active Substance: ASCORBIC ACID
     Dosage: 500 MG, DAILY
     Route: 048
  37. PROVENTIL HFA [Concomitant]
     Active Substance: ALBUTEROL SULFATE
     Indication: WHEEZING
     Dosage: 2 DF, AS NEEDED ( INHALE 2 PUFFS INTO THE LUNGS EVERY 4 HOURS)
     Route: 055

REACTIONS (10)
  - Stress cardiomyopathy [Recovered/Resolved]
  - Memory impairment [Unknown]
  - Pulmonary thrombosis [Not Recovered/Not Resolved]
  - Stress [Unknown]
  - Alopecia [Unknown]
  - Myocardial infarction [Recovered/Resolved]
  - Activities of daily living impaired [Unknown]
  - Cerebrovascular accident [Not Recovered/Not Resolved]
  - Visual field defect [Unknown]
  - Drug effect incomplete [Recovering/Resolving]

NARRATIVE: CASE EVENT DATE: 20160303
